FAERS Safety Report 18488690 (Version 1)
Quarter: 2020Q4

REPORT INFORMATION
  Report Type: Spontaneous
  Country: US (occurrence: US)
  Receive Date: 20201110
  Receipt Date: 20201110
  Transmission Date: 20210114
  Serious: Yes (Other)
  Sender: FDA-Public Use
  Company Number: US-NAPPMUNDI-USA-2020-0154504

PATIENT
  Sex: Male

DRUGS (20)
  1. MS CONTIN [Suspect]
     Active Substance: MORPHINE SULFATE
     Indication: PAIN
     Dosage: 15 MG, QID
     Route: 048
     Dates: start: 20111122, end: 201812
  2. OXYCODONE/ ACETAMINOPHEN TABLETS [Suspect]
     Active Substance: ACETAMINOPHEN\OXYCODONE HYDROCHLORIDE
     Indication: PAIN
     Dosage: UNK
     Route: 048
  3. IBUPROFEN. [Concomitant]
     Active Substance: IBUPROFEN
     Indication: INTERVERTEBRAL DISC PROTRUSION
  4. MELOXICAM. [Concomitant]
     Active Substance: MELOXICAM
     Indication: ANALGESIC THERAPY
     Dosage: 1 TABLET, DAILY
     Route: 048
     Dates: start: 20200312
  5. AMITRIPTYLINE [Concomitant]
     Active Substance: AMITRIPTYLINE
     Indication: ANALGESIC THERAPY
     Dosage: 1 TABLET, DAILY
     Route: 048
     Dates: start: 20200312
  6. GABAPENTIN. [Concomitant]
     Active Substance: GABAPENTIN
     Indication: ANALGESIC THERAPY
     Dosage: 1 TABLET, TID
     Route: 048
     Dates: start: 20200312
  7. LIDODERM [Concomitant]
     Active Substance: LIDOCAINE
     Indication: KYPHOSCOLIOSIS
  8. BACLOFEN. [Concomitant]
     Active Substance: BACLOFEN
     Indication: INTERVERTEBRAL DISC DEGENERATION
  9. OXYCODONE HCL TABLETS (RHODES 91-490) [Suspect]
     Active Substance: OXYCODONE HYDROCHLORIDE
     Indication: PAIN
     Dosage: 15 MG, QID
     Route: 048
     Dates: start: 20111122
  10. MORPHINE SULFATE EXTENDED-RELEASE TABLETS (RHODES 74-769, 74-862) [Suspect]
     Active Substance: MORPHINE SULFATE
     Indication: PAIN
     Dosage: UNK
     Route: 048
  11. BACLOFEN. [Concomitant]
     Active Substance: BACLOFEN
     Indication: BACK PAIN
     Dosage: 20 MG, QID
     Route: 048
     Dates: start: 20111122
  12. LIDODERM [Concomitant]
     Active Substance: LIDOCAINE
     Indication: BACK PAIN
     Dosage: UNK
     Route: 061
     Dates: start: 20111122
  13. LIDODERM [Concomitant]
     Active Substance: LIDOCAINE
     Indication: INTERVERTEBRAL DISC DEGENERATION
  14. LIDODERM [Concomitant]
     Active Substance: LIDOCAINE
     Indication: INTERVERTEBRAL DISC PROTRUSION
  15. BACLOFEN. [Concomitant]
     Active Substance: BACLOFEN
     Indication: INTERVERTEBRAL DISC PROTRUSION
  16. IBUPROFEN. [Concomitant]
     Active Substance: IBUPROFEN
     Indication: KYPHOSCOLIOSIS
  17. HYDROCODONE BITARTRATE/ACETAMINOPHEN [Suspect]
     Active Substance: ACETAMINOPHEN\HYDROCODONE BITARTRATE
     Indication: PAIN
     Dosage: UNK
     Route: 048
  18. IBUPROFEN. [Concomitant]
     Active Substance: IBUPROFEN
     Indication: BACK PAIN
     Dosage: 400 MG, Q4- 6H
     Route: 048
     Dates: start: 20111122
  19. IBUPROFEN. [Concomitant]
     Active Substance: IBUPROFEN
     Indication: INTERVERTEBRAL DISC DEGENERATION
  20. BACLOFEN. [Concomitant]
     Active Substance: BACLOFEN
     Indication: KYPHOSCOLIOSIS

REACTIONS (4)
  - Depression [Unknown]
  - Drug dependence [Unknown]
  - Overdose [Unknown]
  - Mental impairment [Unknown]
